FAERS Safety Report 6439601-8 (Version None)
Quarter: 2009Q4

REPORT INFORMATION
  Report Type: 
  Country: None (occurrence: None)
  Receive Date: 20091113
  Receipt Date: 20091105
  Transmission Date: 20100525
  Serious: Yes (Other)
  Sender: FDA-Public Use
  Company Number: B0603226A

PATIENT
  Age: 65 Year
  Sex: Female

DRUGS (2)
  1. BECONASE [Suspect]
     Route: 045
     Dates: start: 19940101
  2. PERIACTIN [Concomitant]

REACTIONS (3)
  - AGEUSIA [None]
  - ANOSMIA [None]
  - DYSPNOEA [None]
